FAERS Safety Report 10169953 (Version 1)
Quarter: 2014Q2

REPORT INFORMATION
  Report Type: Spontaneous
  Country: GB (occurrence: GB)
  Receive Date: 20140513
  Receipt Date: 20140513
  Transmission Date: 20141212
  Serious: Yes (Other)
  Sender: FDA-Public Use
  Company Number: CHNY2014GB001151

PATIENT
  Sex: 0

DRUGS (2)
  1. SCOPODERM TTS [Suspect]
     Indication: DROOLING
     Dosage: 0.5 DF, UNK
     Route: 062
  2. SCOPODERM TTS [Suspect]
     Indication: OFF LABEL USE

REACTIONS (4)
  - Psychomotor hyperactivity [Recovered/Resolved]
  - Hallucination [Recovered/Resolved]
  - Confusional state [Recovered/Resolved]
  - Wrong technique in drug usage process [Unknown]
